FAERS Safety Report 9233476 (Version 2)
Quarter: 2013Q2

REPORT INFORMATION
  Report Type: Spontaneous
  Country: IN (occurrence: IN)
  Receive Date: 20130416
  Receipt Date: 20130423
  Transmission Date: 20140414
  Serious: Yes (Death)
  Sender: FDA-Public Use
  Company Number: IN-BRISTOL-MYERS SQUIBB COMPANY-18771121

PATIENT
  Age: 60 Year
  Sex: Male

DRUGS (2)
  1. BARACLUDE TABS 0.5 MG [Suspect]
     Dates: start: 20121206, end: 20130307
  2. SORAFENIB [Suspect]

REACTIONS (2)
  - Hepatocellular carcinoma [Fatal]
  - Ascites [Fatal]
